FAERS Safety Report 4307457-5 (Version None)
Quarter: 2004Q1

REPORT INFORMATION
  Report Type: 
  Country: None (occurrence: None)
  Receive Date: 20040226
  Receipt Date: 20040211
  Transmission Date: 20041129
  Serious: Yes (Other)
  Sender: FDA-Public Use
  Company Number: CHNY2004FR00469

PATIENT
  Age: 39 Year
  Sex: Female

DRUGS (1)
  1. NICOPATCH (NCH) (NICOTINE) TRANS-THERAPEUTIC-SYSTEM [Suspect]
     Indication: SMOKING CESSATION THERAPY
     Dosage: 21 MG, QD, TRANSDERMAL
     Route: 062

REACTIONS (2)
  - HYPOAESTHESIA [None]
  - PHARYNGEAL OEDEMA [None]
